FAERS Safety Report 9573576 (Version 1)
Quarter: 2013Q4

REPORT INFORMATION
  Report Type: Spontaneous
  Country: US (occurrence: US)
  Receive Date: 20131001
  Receipt Date: 20131001
  Transmission Date: 20140711
  Serious: Yes (Hospitalization, Other)
  Sender: FDA-Public Use
  Company Number: US-ASTRAZENECA-2013SE71140

PATIENT
  Age: 72 Year
  Sex: Male

DRUGS (10)
  1. NEXIUM [Suspect]
     Indication: GASTROOESOPHAGEAL REFLUX DISEASE
     Route: 048
     Dates: start: 2003
  2. NEXIUM [Suspect]
     Indication: GASTROOESOPHAGEAL REFLUX DISEASE
     Route: 048
     Dates: start: 2011
  3. LISINOPRIL [Suspect]
     Indication: BLOOD PRESSURE ABNORMAL
     Route: 048
  4. CLOPIDOGREL [Concomitant]
     Route: 048
  5. RENAGEL [Concomitant]
     Indication: ILL-DEFINED DISORDER
     Dosage: 1 WITH MEALS EVERYDAY
     Route: 048
  6. PRAVASTATIN [Concomitant]
     Route: 048
  7. LABETALOL [Concomitant]
     Indication: BLOOD PRESSURE ABNORMAL
     Route: 048
  8. ASPIRIN [Concomitant]
     Route: 048
  9. SENSIPAR [Concomitant]
     Indication: RENAL DISORDER
     Route: 048
  10. KIDNEY VITAMIN [Concomitant]
     Indication: SUPPLEMENTATION THERAPY
     Route: 048

REACTIONS (6)
  - Renal failure chronic [Unknown]
  - Cardiac failure congestive [Unknown]
  - Thrombosis [Unknown]
  - Myocardial infarction [Unknown]
  - Hypertension [Unknown]
  - Type 2 diabetes mellitus [Unknown]
